FAERS Safety Report 9500445 (Version 5)
Quarter: 2013Q3

REPORT INFORMATION
  Report Type: Report from Study
  Country: PL (occurrence: PL)
  Receive Date: 20130905
  Receipt Date: 20130927
  Transmission Date: 20140515
  Serious: Yes (Hospitalization)
  Sender: FDA-Public Use
  Company Number: PL-009507513-1308POL011213

PATIENT
  Age: 37 Year
  Sex: Female
  Weight: 63.9 kg

DRUGS (7)
  1. RIBAVIRIN [Suspect]
     Indication: CHRONIC HEPATITIS C
     Dosage: 2 CAPSULES, UNK
     Route: 048
     Dates: start: 20130111, end: 20130111
  2. RIBAVIRIN [Suspect]
     Dosage: 2 CAPSULES, QAM
     Route: 048
     Dates: start: 20130112, end: 20130627
  3. RIBAVIRIN [Suspect]
     Dosage: 3 DF, QPM
     Route: 048
     Dates: start: 20130111, end: 20130627
  4. PEGINTERFERON ALFA-2A [Suspect]
     Indication: CHRONIC HEPATITIS C
     Dosage: 180 MICROGRAM, QW
     Route: 058
     Dates: start: 20130111, end: 20130308
  5. PEGINTERFERON ALFA-2A [Suspect]
     Dosage: 135 MICROGRAM, QW
     Route: 058
     Dates: start: 20130315, end: 20130322
  6. PEGINTERFERON ALFA-2A [Suspect]
     Dosage: 180 MICROGRAM, QW
     Route: 058
     Dates: start: 20130329, end: 20130503
  7. PEGINTERFERON ALFA-2A [Suspect]
     Dosage: 135 MICROGRAM, QW
     Route: 058
     Dates: start: 20130510, end: 20130621

REACTIONS (1)
  - Abdominal pain [Recovering/Resolving]
